FAERS Safety Report 19588678 (Version 1)
Quarter: 2021Q3

REPORT INFORMATION
  Report Type: Spontaneous
  Country: US (occurrence: US)
  Receive Date: 20210721
  Receipt Date: 20210721
  Transmission Date: 20211014
  Serious: No
  Sender: FDA-Public Use
  Company Number: US-PFIZER INC-2021458687

PATIENT
  Age: 70 Year
  Sex: Female
  Weight: 86.17 kg

DRUGS (6)
  1. LETROZOLE. [Concomitant]
     Active Substance: LETROZOLE
  2. TOZINAMERAN. [Suspect]
     Active Substance: TOZINAMERAN
     Indication: COVID-19 IMMUNISATION
     Dosage: DOSE NUMBER UNKNOWN, SINGLE
  3. CALCIUM CARBONATE. [Concomitant]
     Active Substance: CALCIUM CARBONATE
  4. VITAMIN C [Concomitant]
     Active Substance: ASCORBIC ACID
  5. IBRANCE [Suspect]
     Active Substance: PALBOCICLIB
     Indication: BREAST CANCER
     Dosage: 125 MG, 1X/DAY(FOR 21 DAYS)
     Route: 048
     Dates: start: 202004
  6. IRON [Concomitant]
     Active Substance: IRON

REACTIONS (2)
  - Pyrexia [Unknown]
  - Pain [Unknown]
